FAERS Safety Report 11809359 (Version 1)
Quarter: 2015Q4

REPORT INFORMATION
  Report Type: Spontaneous
  Country: US (occurrence: US)
  Receive Date: 20151207
  Receipt Date: 20151207
  Transmission Date: 20160305
  Serious: Yes (Other)
  Sender: FDA-Public Use
  Company Number: US-MYLANLABS-2015M1043381

PATIENT

DRUGS (3)
  1. DOXORUBICIN [Suspect]
     Active Substance: DOXORUBICIN
     Indication: METAPLASTIC BREAST CARCINOMA
     Dosage: RECEIVED ON DAY 1 USING 21 DAYS CYCLE
     Route: 042
  2. EVEROLIMUS [Suspect]
     Active Substance: EVEROLIMUS
     Indication: METAPLASTIC BREAST CARCINOMA
     Dosage: RECEIVED CONTINUOUS DAILY ORAL ADMINISTRATION USING 21 DAYS CYCLE
     Route: 048
  3. BEVACIZUMAB [Suspect]
     Active Substance: BEVACIZUMAB
     Indication: METAPLASTIC BREAST CARCINOMA
     Dosage: RECEIVED ON DAY 1 USING 21 DAYS CYCLE
     Route: 042

REACTIONS (1)
  - Pulmonary toxicity [Unknown]
